FAERS Safety Report 6355046-3 (Version None)
Quarter: 2009Q3

REPORT INFORMATION
  Report Type: 
  Country: None (occurrence: None)
  Receive Date: 20090914
  Receipt Date: 20090910
  Transmission Date: 20100115
  Serious: Yes (Life-Threatening, Hospitalization)
  Sender: FDA-Public Use
  Company Number: JP-EISAI INC.-E2020-04857-CLI-JP

PATIENT
  Sex: Female
  Weight: 42 kg

DRUGS (20)
  1. ARICEPT [Suspect]
     Indication: DEMENTIA WITH LEWY BODIES
     Route: 048
     Dates: start: 20090428, end: 20090511
  2. ARICEPT [Suspect]
     Route: 048
     Dates: start: 20090512, end: 20090608
  3. ARICEPT [Suspect]
     Route: 048
     Dates: start: 20090609, end: 20090704
  4. MENESIT [Suspect]
     Indication: DEMENTIA WITH LEWY BODIES
     Route: 048
     Dates: start: 20080930
  5. CETAPRIL [Suspect]
     Route: 048
     Dates: start: 20090427, end: 20090705
  6. CETAPRIL [Suspect]
     Route: 048
     Dates: start: 20090716, end: 20090717
  7. LACTEC [Concomitant]
     Route: 041
     Dates: start: 20090716, end: 20090716
  8. PHYSIOSOL [Concomitant]
     Route: 041
     Dates: start: 20090705, end: 20090705
  9. PHYSIOSOL [Concomitant]
     Route: 041
     Dates: start: 20090716, end: 20090716
  10. B FLUID [Concomitant]
     Route: 041
     Dates: start: 20090705, end: 20090705
  11. GLYCEOL [Concomitant]
     Route: 041
     Dates: start: 20090705, end: 20090711
  12. GASTER [Concomitant]
     Route: 041
     Dates: start: 20090705, end: 20090707
  13. GASTER [Concomitant]
     Route: 048
     Dates: start: 20090710, end: 20090712
  14. SEISHOKU [Concomitant]
     Route: 041
     Dates: start: 20090706, end: 20090708
  15. SEISHOKU [Concomitant]
     Route: 041
     Dates: start: 20090710, end: 20090710
  16. CEFAMEZIN ALPHA [Concomitant]
     Route: 041
     Dates: start: 20090706, end: 20090708
  17. CEFAMEZIN ALPHA [Concomitant]
     Route: 041
     Dates: start: 20090710, end: 20090710
  18. SAVIOSOL [Concomitant]
     Route: 041
     Dates: start: 20090713, end: 20090717
  19. SOLITA T [Concomitant]
     Route: 041
     Dates: start: 20090715, end: 20090715
  20. TAKEPRON [Concomitant]
     Route: 048
     Dates: start: 20090713, end: 20090721

REACTIONS (2)
  - CEREBRAL INFARCTION [None]
  - SUBARACHNOID HAEMORRHAGE [None]
